FAERS Safety Report 18064710 (Version 1)
Quarter: 2020Q3

REPORT INFORMATION
  Report Type: Spontaneous
  Country: US (occurrence: US)
  Receive Date: 20200723
  Receipt Date: 20200723
  Transmission Date: 20201103
  Serious: No
  Sender: FDA-Public Use
  Company Number: None

PATIENT
  Age: 49 Year
  Sex: Male
  Weight: 111.9 kg

DRUGS (7)
  1. FERROUS GLUCONATE [Concomitant]
     Active Substance: FERROUS GLUCONATE
  2. OXYCODONE [Concomitant]
     Active Substance: OXYCODONE
  3. TYLENOL ER [Concomitant]
     Active Substance: ACETAMINOPHEN
  4. FISH OIL [Concomitant]
     Active Substance: FISH OIL
  5. MULTIVITAMIN ADULT [Concomitant]
  6. IMATINIB. [Suspect]
     Active Substance: IMATINIB MESYLATE
     Indication: SMALL INTESTINE CARCINOMA
     Route: 048
     Dates: start: 20190130, end: 20200723
  7. LISINOPRIL. [Concomitant]
     Active Substance: LISINOPRIL

REACTIONS (1)
  - Disease progression [None]

NARRATIVE: CASE EVENT DATE: 20200723
